FAERS Safety Report 5408207-1 (Version None)
Quarter: 2007Q3

REPORT INFORMATION
  Report Type: 
  Country: None (occurrence: None)
  Receive Date: 20070806
  Receipt Date: 20070724
  Transmission Date: 20080115
  Serious: Yes (Disabling)
  Sender: FDA-Public Use
  Company Number: B0041887A

PATIENT
  Age: 13 Year
  Sex: Female

DRUGS (5)
  1. BUSULPHAN (FORMULATION UNKNOWN) (GENERIC) (BUSULFAN) [Suspect]
     Indication: BONE MARROW TRANSPLANT
     Dosage: 16 MG/KG /
  2. CYCLOPHOSPHAMIDE [Suspect]
     Indication: BONE MARROW TRANSPLANT
     Dosage: 200 MG/KG /
  3. ANTITHYMOCYTE IG [Concomitant]
  4. CYCLOSPORINE [Concomitant]
  5. METHOTREXATE [Concomitant]

REACTIONS (6)
  - BLOOD FOLLICLE STIMULATING HORMONE INCREASED [None]
  - BLOOD GONADOTROPHIN INCREASED [None]
  - DRUG TOXICITY [None]
  - GROWTH ACCELERATED [None]
  - OVARIAN FAILURE [None]
  - SECONDARY SEXUAL CHARACTERISTICS ABSENCE [None]
